FAERS Safety Report 10382553 (Version 1)
Quarter: 2014Q3

REPORT INFORMATION
  Report Type: Spontaneous
  Country: US (occurrence: US)
  Receive Date: 20140813
  Receipt Date: 20140813
  Transmission Date: 20150326
  Serious: No
  Sender: FDA-Public Use
  Company Number: US-SANOFI-AVENTIS-2013SA086774

PATIENT
  Age: 73 Year
  Sex: Female

DRUGS (5)
  1. LISINOPRIL. [Concomitant]
     Active Substance: LISINOPRIL
  2. MULTAQ [Suspect]
     Active Substance: DRONEDARONE
     Indication: ATRIAL FIBRILLATION
     Route: 048
  3. POTASSIUM [Concomitant]
     Active Substance: POTASSIUM
  4. DIURETICS [Concomitant]
     Active Substance: UNSPECIFIED INGREDIENT
  5. COREG [Concomitant]
     Active Substance: CARVEDILOL

REACTIONS (3)
  - Gait disturbance [Unknown]
  - Blood pressure decreased [Unknown]
  - Hypoacusis [Not Recovered/Not Resolved]
